FAERS Safety Report 9281371 (Version 1)
Quarter: 2013Q2

REPORT INFORMATION
  Report Type: Report from Study
  Country: US (occurrence: US)
  Receive Date: 20130509
  Receipt Date: 20130509
  Transmission Date: 20140414
  Serious: Yes (Hospitalization)
  Sender: FDA-Public Use
  Company Number: US-GENZYME-CAMP-10057

PATIENT
  Age: 36 Year
  Sex: Male

DRUGS (13)
  1. ALEMTUZUMAB [Suspect]
     Indication: MULTIPLE SCLEROSIS
     Dosage: 24 MG, QD
     Route: 042
     Dates: start: 20030602, end: 20030605
  2. ALEMTUZUMAB [Suspect]
     Dosage: 24 MG, QD
     Route: 042
     Dates: start: 20040602, end: 20040604
  3. ALEMTUZUMAB [Suspect]
     Dosage: 24 MG, QD
     Route: 042
     Dates: start: 20050607, end: 20050609
  4. FIORICET [Concomitant]
     Indication: PRODUCT USED FOR UNKNOWN INDICATION
     Dosage: UNK
     Dates: start: 20030821
  5. ZOLOFT [Concomitant]
     Indication: PRODUCT USED FOR UNKNOWN INDICATION
     Dosage: UNK
     Dates: start: 20040325
  6. PAMELOR [Concomitant]
     Indication: PRODUCT USED FOR UNKNOWN INDICATION
     Dosage: UNK
     Dates: start: 20030808
  7. COUMADIN [Concomitant]
     Indication: PRODUCT USED FOR UNKNOWN INDICATION
     Dosage: UNK
     Dates: start: 20040625, end: 20050611
  8. COUMADIN [Concomitant]
     Dosage: UNK
     Dates: start: 20050615
  9. BACLOFEN [Concomitant]
     Indication: PRODUCT USED FOR UNKNOWN INDICATION
     Dosage: UNK
     Dates: start: 20050715
  10. LOPRESSOR [Concomitant]
     Indication: DYSPNOEA
     Dosage: 100 MG, QD
     Dates: start: 20060311
  11. LOPRESSOR [Concomitant]
     Indication: CHEST PAIN
  12. MORPHINE [Concomitant]
     Indication: HEADACHE
  13. LOVENOX [Concomitant]
     Indication: PROPHYLAXIS
     Dosage: 120 MG, BID
     Route: 058
     Dates: start: 20060311, end: 20060320

REACTIONS (1)
  - Thyroiditis subacute [Not Recovered/Not Resolved]
